FAERS Safety Report 4923932-4 (Version None)
Quarter: 2006Q1

REPORT INFORMATION
  Report Type: 
  Country: None (occurrence: None)
  Receive Date: 20060227
  Receipt Date: 20050729
  Transmission Date: 20060701
  Serious: Yes (Hospitalization, Disabling)
  Sender: FDA-Public Use
  Company Number: US-MERCK-0508USA00351

PATIENT
  Age: 60 Year
  Sex: Male
  Weight: 78 kg

DRUGS (1)
  1. VIOXX [Suspect]
     Indication: OSTEOARTHRITIS
     Route: 048
     Dates: start: 20000406, end: 20041104

REACTIONS (20)
  - ACUTE MYOCARDIAL INFARCTION [None]
  - BENIGN PROSTATIC HYPERPLASIA [None]
  - CELLULITIS [None]
  - CHEST DISCOMFORT [None]
  - CHRONIC SINUSITIS [None]
  - CORONARY ARTERY DISEASE [None]
  - DYSLIPIDAEMIA [None]
  - DYSPEPSIA [None]
  - EPISTAXIS [None]
  - ERECTILE DYSFUNCTION [None]
  - EXOSTOSIS [None]
  - GASTROOESOPHAGEAL REFLUX DISEASE [None]
  - HYPERTENSION [None]
  - MUSCLE STRAIN [None]
  - PARONYCHIA [None]
  - PLANTAR FASCIITIS [None]
  - RECTAL HAEMORRHAGE [None]
  - SINUSITIS [None]
  - TINEA PEDIS [None]
  - UPPER RESPIRATORY TRACT INFECTION [None]
